FAERS Safety Report 11099801 (Version 7)
Quarter: 2015Q4

REPORT INFORMATION
  Report Type: Spontaneous
  Country: US (occurrence: US)
  Receive Date: 20150508
  Receipt Date: 20151021
  Transmission Date: 20160304
  Serious: Yes (Other)
  Sender: FDA-Public Use
  Company Number: US-PFIZER INC-2015151259

PATIENT
  Age: 43 Year
  Sex: Female
  Weight: 68 kg

DRUGS (10)
  1. LYRICA [Suspect]
     Active Substance: PREGABALIN
     Indication: NEUROPATHY PERIPHERAL
     Dosage: 75 MG, DAILY (ONE TIME A DAY IN THE EVENING, QHS)
     Route: 048
  2. HYDROCORTISONE. [Concomitant]
     Active Substance: HYDROCORTISONE
     Dosage: UNK
  3. OMEGA FISH OIL [Concomitant]
     Active Substance: FISH OIL\OMEGA-3 FATTY ACIDS
     Dosage: UNK
  4. LYRICA [Suspect]
     Active Substance: PREGABALIN
     Indication: HERPES ZOSTER
     Dosage: 75 MG, ALTERNATE DAY
     Route: 048
  5. CELLCEPT [Concomitant]
     Active Substance: MYCOPHENOLATE MOFETIL\MYCOPHENOLATE MOFETIL HYDROCHLORIDE
     Dosage: UNK
  6. METOPROLOL [Concomitant]
     Active Substance: METOPROLOL
     Dosage: UNK
  7. CETIRIZINE [Concomitant]
     Active Substance: CETIRIZINE HYDROCHLORIDE
     Dosage: UNK
  8. CLONAZEPAM. [Concomitant]
     Active Substance: CLONAZEPAM
     Dosage: UNK
  9. TOPAMAX [Concomitant]
     Active Substance: TOPIRAMATE
     Dosage: UNK
  10. FAMVIR [Concomitant]
     Active Substance: FAMCICLOVIR
     Dosage: UNK
     Dates: start: 20150511, end: 20150520

REACTIONS (18)
  - Vertigo [Not Recovered/Not Resolved]
  - Ear infection [Not Recovered/Not Resolved]
  - Migraine [Not Recovered/Not Resolved]
  - Nausea [Not Recovered/Not Resolved]
  - Cognitive disorder [Unknown]
  - Cardiac failure [Unknown]
  - Depression [Recovered/Resolved]
  - Impaired work ability [Unknown]
  - Malaise [Recovered/Resolved]
  - Condition aggravated [Not Recovered/Not Resolved]
  - Product use issue [Not Recovered/Not Resolved]
  - Crying [Recovered/Resolved]
  - Systemic lupus erythematosus [Not Recovered/Not Resolved]
  - Dizziness [Unknown]
  - Nightmare [Recovered/Resolved]
  - Pain [Not Recovered/Not Resolved]
  - Headache [Not Recovered/Not Resolved]
  - Feeling abnormal [Unknown]

NARRATIVE: CASE EVENT DATE: 20150428
